FAERS Safety Report 4447822-9 (Version None)
Quarter: 2004Q3

REPORT INFORMATION
  Report Type: 
  Country: None (occurrence: None)
  Receive Date: 20040913
  Receipt Date: 20040908
  Transmission Date: 20050211
  Serious: Yes (Death)
  Sender: FDA-Public Use
  Company Number: PHEH2004US09656

PATIENT
  Age: 79 Year
  Sex: Female
  Weight: 75 kg

DRUGS (2)
  1. ZOMETA [Suspect]
     Indication: MULTIPLE MYELOMA
     Dosage: 4 MG, QMO
     Route: 042
     Dates: start: 20020123, end: 20040227
  2. AREDIA [Suspect]
     Indication: MULTIPLE MYELOMA
     Dates: start: 20040301

REACTIONS (2)
  - BLOOD CREATININE INCREASED [None]
  - DEATH [None]
